FAERS Safety Report 10811282 (Version 1)
Quarter: 2015Q1

REPORT INFORMATION
  Report Type: Report from Study
  Country: US (occurrence: US)
  Receive Date: 20150217
  Receipt Date: 20150217
  Transmission Date: 20150721
  Serious: No
  Sender: FDA-Public Use
  Company Number: US-ABBVIE-14K-163-1270098-00

PATIENT
  Age: 37 Year
  Sex: Female

DRUGS (11)
  1. PREDNISONE. [Suspect]
     Active Substance: PREDNISONE
  2. LIALDA [Concomitant]
     Active Substance: MESALAMINE
     Indication: COLITIS ULCERATIVE
  3. PREDNISONE. [Suspect]
     Active Substance: PREDNISONE
  4. HUMIRA [Suspect]
     Active Substance: ADALIMUMAB
     Dates: start: 20140709, end: 20140709
  5. HUMIRA [Suspect]
     Active Substance: ADALIMUMAB
     Dates: start: 20140723, end: 20140723
  6. PREDNISONE. [Suspect]
     Active Substance: PREDNISONE
  7. HUMIRA [Suspect]
     Active Substance: ADALIMUMAB
     Indication: COLITIS ULCERATIVE
     Dates: start: 20140625, end: 20140625
  8. PREDNISONE. [Suspect]
     Active Substance: PREDNISONE
     Indication: PRODUCT USED FOR UNKNOWN INDICATION
     Dates: end: 20140710
  9. PRILOSEC [Concomitant]
     Active Substance: OMEPRAZOLE MAGNESIUM
     Indication: DYSPEPSIA
  10. HUMIRA [Suspect]
     Active Substance: ADALIMUMAB
     Dates: start: 20140730
  11. PREDNISONE. [Suspect]
     Active Substance: PREDNISONE
     Dates: start: 20140721

REACTIONS (3)
  - Abdominal distension [Unknown]
  - Menstruation delayed [Not Recovered/Not Resolved]
  - Colitis ulcerative [Recovering/Resolving]

NARRATIVE: CASE EVENT DATE: 2014
